FAERS Safety Report 7042600-9 (Version None)
Quarter: 2010Q4

REPORT INFORMATION
  Report Type: 
  Country: None (occurrence: None)
  Receive Date: 20101008
  Receipt Date: 20100930
  Transmission Date: 20110411
  Serious: Yes (Life-Threatening, Hospitalization, Other)
  Sender: FDA-Public Use
  Company Number: CIP10002322

PATIENT
  Age: 59 Year
  Sex: Female

DRUGS (7)
  1. ACTONEL WITH CALCIUM (COPACKAGED) [Suspect]
     Indication: OSTEOPOROSIS
     Dosage: 1 DOSE FORM CYCLIC DAILY, ORAL ; ONE HALF TABLET WEEKLY, ORAL
     Route: 048
     Dates: start: 20100115, end: 20100301
  2. ACTONEL WITH CALCIUM (COPACKAGED) [Suspect]
     Indication: OSTEOPOROSIS
     Dosage: 1 DOSE FORM CYCLIC DAILY, ORAL ; ONE HALF TABLET WEEKLY, ORAL
     Route: 048
     Dates: start: 20100601, end: 20100924
  3. TEGRETOL [Concomitant]
  4. VENTOLIN [Concomitant]
  5. BACTRIM [Concomitant]
  6. ZINC (ZINC) [Concomitant]
  7. VITAMIN B COMPLEX /00003501/ (CALCIUM PANTOTHENATE, NICOTINAMIDE, PYRI [Concomitant]

REACTIONS (5)
  - CONVULSION [None]
  - FALL [None]
  - SKULL FRACTURE [None]
  - SUBDURAL HAEMATOMA [None]
  - URINARY INCONTINENCE [None]
